FAERS Safety Report 8182900-2 (Version None)
Quarter: 2012Q1

REPORT INFORMATION
  Report Type: 
  Country: None (occurrence: None)
  Receive Date: 20120305
  Receipt Date: 20120227
  Transmission Date: 20120608
  Serious: Yes (Hospitalization)
  Sender: FDA-Public Use
  Company Number: US-BRISTOL-MYERS SQUIBB COMPANY-15835671

PATIENT
  Age: 90 Year
  Sex: Female

DRUGS (2)
  1. NORVASC [Concomitant]
  2. COUMADIN [Suspect]
     Indication: ATRIAL FIBRILLATION

REACTIONS (6)
  - ECCHYMOSIS [None]
  - OEDEMA PERIPHERAL [None]
  - CHILLS [None]
  - ABDOMINAL OPERATION [None]
  - LYMPHOEDEMA [None]
  - NAUSEA [None]
